FAERS Safety Report 4709436-2 (Version None)
Quarter: 2005Q3

REPORT INFORMATION
  Report Type: 
  Country: None (occurrence: None)
  Receive Date: 20050708
  Receipt Date: 20010727
  Transmission Date: 20060218
  Serious: Yes (Disabling)
  Sender: FDA-Public Use
  Company Number: CA-GLAXOSMITHKLINE-A0350642A

PATIENT
  Age: 61 Year
  Sex: Female
  Weight: 52.15 kg

DRUGS (5)
  1. AVANDIA [Suspect]
     Dosage: 8MG PER DAY
     Route: 048
     Dates: start: 20001214, end: 20010719
  2. COVERSYL [Concomitant]
     Dosage: 8MG PER DAY
     Route: 048
     Dates: start: 20000327
  3. LIPIDIL [Concomitant]
     Dosage: 200MG PER DAY
     Route: 048
     Dates: start: 19990623
  4. METFORMIN [Concomitant]
     Dosage: 750MG THREE TIMES PER DAY
     Route: 048
     Dates: start: 19990916
  5. GLYBURIDE [Concomitant]
     Dosage: 10MG TWICE PER DAY
     Route: 048
     Dates: start: 19990623

REACTIONS (4)
  - ANGINA PECTORIS [None]
  - BLOOD TRIGLYCERIDES INCREASED [None]
  - HIGH DENSITY LIPOPROTEIN DECREASED [None]
  - TOTAL CHOLESTEROL/HDL RATIO INCREASED [None]
